FAERS Safety Report 11114593 (Version 2)
Quarter: 2015Q3

REPORT INFORMATION
  Report Type: Spontaneous
  Country: US (occurrence: US)
  Receive Date: 20150515
  Receipt Date: 20150716
  Transmission Date: 20151125
  Serious: No
  Sender: FDA-Public Use
  Company Number: US-009507513-1504USA024203

PATIENT
  Sex: Female

DRUGS (1)
  1. NEXPLANON [Suspect]
     Active Substance: ETONOGESTREL
     Indication: CONTRACEPTION
     Dosage: 1 ROD, ONCE, LEFT ARM
     Route: 059
     Dates: start: 201502

REACTIONS (2)
  - Device breakage [Unknown]
  - Implant site mass [Unknown]

NARRATIVE: CASE EVENT DATE: 2015
